FAERS Safety Report 11704415 (Version 2)
Quarter: 2015Q4

REPORT INFORMATION
  Report Type: Spontaneous
  Country: US (occurrence: US)
  Receive Date: 20151106
  Receipt Date: 20151210
  Transmission Date: 20160304
  Serious: Yes (Death)
  Sender: FDA-Public Use
  Company Number: US-BAYER-2015-454197

PATIENT

DRUGS (1)
  1. MIRENA [Suspect]
     Active Substance: LEVONORGESTREL
     Route: 064

REACTIONS (2)
  - Foetal death [Fatal]
  - Foetal exposure timing unspecified [None]
